FAERS Safety Report 11853064 (Version 1)
Quarter: 2015Q4

REPORT INFORMATION
  Report Type: Report from Study
  Country: JP (occurrence: JP)
  Receive Date: 20151218
  Receipt Date: 20151218
  Transmission Date: 20160305
  Serious: Yes (Hospitalization, Other)
  Sender: FDA-Public Use
  Company Number: JP-SHIRE-JP-002478

PATIENT
  Age: 31 Year
  Sex: Male
  Weight: 54 kg

DRUGS (33)
  1. TEDUGLUTIDE [Suspect]
     Active Substance: TEDUGLUTIDE
     Indication: SHORT-BOWEL SYNDROME
     Dosage: UNK
     Route: 058
     Dates: start: 20150821, end: 20150905
  2. VENOGLOBULIN [Concomitant]
     Active Substance: HUMAN IMMUNOGLOBULIN G
     Indication: DEVICE RELATED INFECTION
     Dosage: 60 ML, DAILY
     Route: 042
     Dates: start: 20150827, end: 20150827
  3. VITAJECT                           /07504101/ [Concomitant]
     Indication: MICROVILLOUS INCLUSION DISEASE
     Route: 042
     Dates: start: 20131126
  4. URSO [Concomitant]
     Active Substance: URSODIOL
     Indication: CHOLESTASIS
     Route: 048
     Dates: start: 20050525
  5. SALINE                             /00075401/ [Concomitant]
     Active Substance: SODIUM CHLORIDE
     Indication: DEVICE RELATED INFECTION
     Route: 042
     Dates: start: 20150824, end: 20150830
  6. CALONAL [Concomitant]
     Active Substance: ACETAMINOPHEN
     Indication: DEVICE RELATED INFECTION
     Route: 048
     Dates: start: 20150821, end: 20150821
  7. LIPIDS NOS W/PROTEINS NOS/VITAMINS NOS [Concomitant]
     Dosage: DF, 12-HOUR ADMINISTRATION
     Dates: end: 20150906
  8. GASTER [Concomitant]
     Active Substance: FAMOTIDINE
     Indication: PROPHYLAXIS
     Route: 048
     Dates: start: 20050525
  9. PN TWIN [Concomitant]
     Indication: MICROVILLOUS INCLUSION DISEASE
     Route: 042
     Dates: start: 20131126
  10. ELEMENMIC [Concomitant]
     Active Substance: CUPRIC SULFATE\FERRIC CHLORIDE\MANGANESE CHLORIDE\POTASSIUM IODIDE\ZINC SULFATE
     Indication: MICROVILLOUS INCLUSION DISEASE
     Route: 042
     Dates: start: 20131126
  11. INTRALIPOS [Concomitant]
     Active Substance: SOYBEAN OIL
     Indication: MICROVILLOUS INCLUSION DISEASE
     Route: 042
     Dates: start: 20150223
  12. SEREN [Concomitant]
     Indication: MICROVILLOUS INCLUSION DISEASE
     Route: 042
     Dates: start: 20140707
  13. NOVOLIN R [Concomitant]
     Active Substance: INSULIN HUMAN
     Indication: DIABETES MELLITUS
     Route: 058
     Dates: start: 20131106
  14. MIRCERA [Concomitant]
     Active Substance: METHOXY POLYETHYLENE GLYCOL-EPOETIN BETA
     Indication: NEPHROGENIC ANAEMIA
     Dosage: 50 MCG, AS NEEDED
     Route: 058
     Dates: start: 20150722
  15. FORTEO [Concomitant]
     Active Substance: TERIPARATIDE
     Indication: OSTEOPOROSIS
     Route: 058
     Dates: start: 20131129
  16. MIYA-BM [Concomitant]
     Active Substance: CLOSTRIDIUM BUTYRICUM SPORES STRAIN M-55
     Indication: MICROVILLOUS INCLUSION DISEASE
     Route: 048
     Dates: start: 20121219
  17. BIOFERMIN R [Concomitant]
     Active Substance: BACILLUS SUBTILIS\LACTOBACILLUS ACIDOPHILUS\STREPTOCOCCUS FAECAIS
     Indication: MICROVILLOUS INCLUSION DISEASE
     Route: 048
     Dates: start: 20030430
  18. EDIROL [Concomitant]
     Active Substance: ELDECALCITOL
     Indication: OSTEOPOROSIS
     Route: 048
     Dates: start: 20121219
  19. OMEGAVEN                           /01334101/ [Concomitant]
     Indication: MICROVILLOUS INCLUSION DISEASE
     Dosage: 100 ML, AS NEEDED
     Route: 042
     Dates: start: 20141029
  20. POTASSIUM CHLORIDE. [Concomitant]
     Active Substance: POTASSIUM CHLORIDE
     Indication: MICROVILLOUS INCLUSION DISEASE
     Route: 042
     Dates: start: 20131126
  21. MEROPEN                            /01250501/ [Concomitant]
     Active Substance: MEROPENEM
     Dosage: 0.5 G ONCE
     Route: 042
     Dates: start: 20150830, end: 20150830
  22. MEROPEN                            /01250501/ [Concomitant]
     Active Substance: MEROPENEM
     Route: 042
     Dates: start: 2015
  23. CORTRIL [Concomitant]
     Active Substance: HYDROCORTISONE
     Indication: ADRENAL INSUFFICIENCY
     Route: 048
     Dates: start: 20150722, end: 20150908
  24. CORTRIL [Concomitant]
     Active Substance: HYDROCORTISONE
     Dosage: 30 MG, 2X/DAY:BID
     Route: 048
     Dates: start: 20150513, end: 20150721
  25. SODIUM BICARBONATE. [Concomitant]
     Active Substance: SODIUM BICARBONATE
     Indication: MICROVILLOUS INCLUSION DISEASE
     Route: 048
     Dates: start: 20131120
  26. SODIUM PHOSPHATE [Concomitant]
     Active Substance: SODIUM PHOSPHATE
     Indication: MICROVILLOUS INCLUSION DISEASE
     Route: 042
     Dates: start: 20131120
  27. MEROPEN                            /01250501/ [Concomitant]
     Active Substance: MEROPENEM
     Indication: DEVICE RELATED INFECTION
     Dosage: 0.5 G ONCE
     Route: 042
     Dates: start: 20150824, end: 20150824
  28. MEROPEN                            /01250501/ [Concomitant]
     Active Substance: MEROPENEM
     Dosage: 0.5 G ONCE
     Route: 042
     Dates: start: 20150829, end: 20150829
  29. LIPIDS NOS W/PROTEINS NOS/VITAMINS NOS [Concomitant]
     Indication: MEDICAL DIET
     Dosage: DF, 24-HOUR CONTINUOUS DOSING
     Dates: start: 20150907
  30. SOLULACT [Concomitant]
     Indication: MICROVILLOUS INCLUSION DISEASE
     Route: 042
     Dates: start: 20150915
  31. SOLULACT [Concomitant]
     Route: 042
     Dates: start: 20140908
  32. MAGNESIUM SULFATE. [Concomitant]
     Active Substance: MAGNESIUM SULFATE
     Indication: MICROVILLOUS INCLUSION DISEASE
     Dosage: 1 AMPULE, ONCE A DAY
     Route: 042
     Dates: start: 20131225
  33. BLOPRESS [Concomitant]
     Active Substance: CANDESARTAN CILEXETIL
     Indication: HYPERTENSION
     Route: 048
     Dates: start: 20060913

REACTIONS (3)
  - Enterocolitis [Recovered/Resolved]
  - Acute hepatic failure [Recovered/Resolved]
  - Intestinal obstruction [Recovered/Resolved]

NARRATIVE: CASE EVENT DATE: 20150902
